FAERS Safety Report 10961164 (Version 1)
Quarter: 2015Q1

REPORT INFORMATION
  Report Type: Spontaneous
  Country: US (occurrence: US)
  Receive Date: 20150327
  Receipt Date: 20150327
  Transmission Date: 20150721
  Serious: Yes (Death)
  Sender: FDA-Public Use
  Company Number: US-CIPLA LTD.-2015US02369

PATIENT

DRUGS (5)
  1. PANTOPRAZOLE [Suspect]
     Active Substance: PANTOPRAZOLE SODIUM
  2. LORAZEPAM. [Suspect]
     Active Substance: LORAZEPAM
  3. SIMVASTATIN. [Suspect]
     Active Substance: SIMVASTATIN
  4. LOSARTAN [Suspect]
     Active Substance: LOSARTAN
  5. CARVEDILOL. [Suspect]
     Active Substance: CARVEDILOL

REACTIONS (1)
  - Medication error [Fatal]
